FAERS Safety Report 24269947 (Version 2)
Quarter: 2024Q3

REPORT INFORMATION
  Report Type: Spontaneous
  Country: CA (occurrence: CA)
  Receive Date: 20240830
  Receipt Date: 20240903
  Transmission Date: 20241017
  Serious: Yes (Death, Life-Threatening, Hospitalization, Other)
  Sender: PFIZER
  Company Number: CA-PFIZER INC-PV202400111530

PATIENT
  Age: 75 Year
  Sex: Female

DRUGS (24)
  1. LORAZEPAM [Suspect]
     Active Substance: LORAZEPAM
     Indication: Cerebral amyloid angiopathy
     Dosage: 2 MG, 1X/DAY (ADMISSION DAY 0)
     Route: 042
  2. LORAZEPAM [Suspect]
     Active Substance: LORAZEPAM
     Indication: Status epilepticus
  3. METHYLPREDNISOLONE [Suspect]
     Active Substance: METHYLPREDNISOLONE
     Indication: Evidence based treatment
     Dosage: UNK (HIGH-DOSE INTRAVENOUS) ON ADMISSION DAY 4
     Route: 042
  4. METHYLPREDNISOLONE [Suspect]
     Active Substance: METHYLPREDNISOLONE
     Dosage: UNK (SECOND COURSE OF HIGH-DOSE) ON ADMISSION DAY 18
     Route: 042
  5. MIDAZOLAM [Suspect]
     Active Substance: MIDAZOLAM
     Indication: Cerebral amyloid angiopathy
     Dosage: UNK (5-10 MG/H)
  6. MIDAZOLAM [Suspect]
     Active Substance: MIDAZOLAM
     Indication: Status epilepticus
  7. PHENYTOIN [Suspect]
     Active Substance: PHENYTOIN
     Indication: Cerebral amyloid angiopathy
     Dosage: UNK (5-10 MG/H)
  8. PHENYTOIN [Suspect]
     Active Substance: PHENYTOIN
     Indication: Status epilepticus
     Dosage: 1000 MG, 1X/DAY (ADMISSION DAY 28)
     Route: 042
  9. PHENYTOIN [Suspect]
     Active Substance: PHENYTOIN
     Dosage: 100 MG, 3X/DAY  (ADMISSION DAY 28)
     Route: 048
  10. LACOSAMIDE [Suspect]
     Active Substance: LACOSAMIDE
     Indication: Cerebral amyloid angiopathy
     Dosage: UNK
  11. LACOSAMIDE [Suspect]
     Active Substance: LACOSAMIDE
     Indication: Status epilepticus
  12. PROPOFOL [Suspect]
     Active Substance: PROPOFOL
     Indication: Cerebral amyloid angiopathy
     Dosage: UNK (INFUSION) (ADMISSION DAY 29)
  13. PROPOFOL [Suspect]
     Active Substance: PROPOFOL
     Indication: Status epilepticus
  14. VALPROIC ACID [Suspect]
     Active Substance: VALPROIC ACID
     Indication: Cerebral amyloid angiopathy
     Dosage: 500 MG, 3X/DAY (ADMISSION DAY 13)
     Route: 048
  15. VALPROIC ACID [Suspect]
     Active Substance: VALPROIC ACID
     Indication: Status epilepticus
  16. LEVETIRACETAM [Suspect]
     Active Substance: LEVETIRACETAM
     Indication: Cerebral amyloid angiopathy
     Dosage: 2000 MG, 1X/DAY (ADMISSION DAY 0)
     Route: 042
  17. LEVETIRACETAM [Suspect]
     Active Substance: LEVETIRACETAM
     Indication: Status epilepticus
     Dosage: 500 MG, 2X/DAY (ADMISSION DAY 0)
     Route: 048
  18. LEVETIRACETAM [Suspect]
     Active Substance: LEVETIRACETAM
     Dosage: 750 MG, 2X/DAY (ADMISSION DAY 1)
     Route: 048
  19. LEVETIRACETAM [Suspect]
     Active Substance: LEVETIRACETAM
     Dosage: 750 MG, 2X/DAY (ADMISSION DAY 28)
     Route: 048
  20. LEVETIRACETAM [Suspect]
     Active Substance: LEVETIRACETAM
     Dosage: 1000 MG, 2X/DAY (ADMISSION DAY 29)
     Route: 048
  21. ROSUVASTATIN [Concomitant]
     Active Substance: ROSUVASTATIN\ROSUVASTATIN CALCIUM
     Dosage: UNK
  22. RAMIPRIL [Concomitant]
     Active Substance: RAMIPRIL
     Dosage: UNK
  23. CYANOCOBALAMIN [Concomitant]
     Active Substance: CYANOCOBALAMIN
     Dosage: UNK
  24. TRAZODONE [Concomitant]
     Active Substance: TRAZODONE HYDROCHLORIDE
     Dosage: UNK

REACTIONS (1)
  - Drug ineffective [Fatal]
